FAERS Safety Report 16740157 (Version 1)
Quarter: 2019Q3

REPORT INFORMATION
  Report Type: Spontaneous
  Country: DE (occurrence: DE)
  Receive Date: 20190826
  Receipt Date: 20190826
  Transmission Date: 20191005
  Serious: Yes (Hospitalization, Congenital Anomaly)
  Sender: FDA-Public Use
  Company Number: DE-PERRIGO-19DE009983

PATIENT
  Sex: Female

DRUGS (30)
  1. ATRACURIUM [Concomitant]
     Active Substance: ATRACURIUM
     Indication: FOETAL EXPOSURE DURING PREGNANCY
  2. SIMVASTATIN. [Concomitant]
     Active Substance: SIMVASTATIN
     Indication: FOETAL EXPOSURE DURING PREGNANCY
  3. METHYLDOPA. [Concomitant]
     Active Substance: METHYLDOPA
     Indication: FOETAL EXPOSURE DURING PREGNANCY
     Dosage: UNK (1ST-3RD TRIMESTER)
     Route: 064
  4. NIMODIPINE. [Concomitant]
     Active Substance: NIMODIPINE
     Indication: FOETAL EXPOSURE DURING PREGNANCY
     Dosage: UNK (1ST TRIMESTER)
     Route: 064
  5. DESMOPRESSIN [Concomitant]
     Active Substance: DESMOPRESSIN
     Indication: FOETAL EXPOSURE DURING PREGNANCY
     Dosage: UNK (1ST TRIMESTER)
     Route: 064
  6. LORAZEPAM. [Concomitant]
     Active Substance: LORAZEPAM
     Indication: FOETAL EXPOSURE DURING PREGNANCY
  7. HEPARIN [Concomitant]
     Active Substance: HEPARIN SODIUM
     Indication: FOETAL EXPOSURE DURING PREGNANCY
  8. METAMIZOLE [Concomitant]
     Active Substance: METAMIZOLE
     Indication: FOETAL EXPOSURE DURING PREGNANCY
  9. PIRITRAMIDE [Concomitant]
     Active Substance: PIRITRAMIDE
     Indication: FOETAL EXPOSURE DURING PREGNANCY
  10. CEFOTAXIME [Concomitant]
     Active Substance: CEFOTAXIME SODIUM
     Indication: FOETAL EXPOSURE DURING PREGNANCY
  11. NIFEDIPINE. [Concomitant]
     Active Substance: NIFEDIPINE
     Indication: FOETAL EXPOSURE DURING PREGNANCY
     Dosage: UNK (1ST TRIMESTER)
     Route: 064
  12. METOCLOPRAMIDE. [Concomitant]
     Active Substance: METOCLOPRAMIDE
     Indication: FOETAL EXPOSURE DURING PREGNANCY
  13. ESOMEPRAZOLE. [Concomitant]
     Active Substance: ESOMEPRAZOLE MAGNESIUM
     Indication: FOETAL EXPOSURE DURING PREGNANCY
  14. ENOXAPARIN [Concomitant]
     Active Substance: ENOXAPARIN
     Indication: FOETAL EXPOSURE DURING PREGNANCY
  15. ACETAMINOPHEN. [Suspect]
     Active Substance: ACETAMINOPHEN
     Indication: FOETAL EXPOSURE DURING PREGNANCY
     Dosage: 19000 MG, TOTAL
     Route: 064
  16. CLONIDINE. [Concomitant]
     Active Substance: CLONIDINE
     Indication: FOETAL EXPOSURE DURING PREGNANCY
     Dosage: UNK (1ST TRIMESTER)
     Route: 064
  17. CEFUROXIME. [Concomitant]
     Active Substance: CEFUROXIME
     Indication: FOETAL EXPOSURE DURING PREGNANCY
  18. NOREPINEPHRINE. [Concomitant]
     Active Substance: NOREPINEPHRINE
     Indication: FOETAL EXPOSURE DURING PREGNANCY
     Dosage: UNK (1ST TRIMESTER)
     Route: 064
  19. SUXAMETHONIUM [Concomitant]
     Active Substance: SUCCINYLCHOLINE
     Indication: FOETAL EXPOSURE DURING PREGNANCY
     Dosage: UNK (1ST TRIMESTER)
     Route: 064
  20. PROPOFOL. [Concomitant]
     Active Substance: PROPOFOL
     Indication: FOETAL EXPOSURE DURING PREGNANCY
     Dosage: UNK (1ST TRIMESTER)
     Route: 064
  21. MIDAZOLAM [Concomitant]
     Active Substance: MIDAZOLAM HYDROCHLORIDE
     Indication: FOETAL EXPOSURE DURING PREGNANCY
     Dosage: UNK (1ST TRIMESTER)
     Route: 064
  22. RANITIDINE. [Concomitant]
     Active Substance: RANITIDINE
     Indication: FOETAL EXPOSURE DURING PREGNANCY
  23. COTRIMOXAZOLE [Concomitant]
     Active Substance: SULFAMETHOXAZOLE\TRIMETHOPRIM
     Indication: FOETAL EXPOSURE DURING PREGNANCY
  24. METOPROLOL. [Concomitant]
     Active Substance: METOPROLOL
     Indication: FOETAL EXPOSURE DURING PREGNANCY
     Dosage: UNK (1ST TRIMESTER)
     Route: 064
  25. REMIFENTANIL [Concomitant]
     Active Substance: REMIFENTANIL
     Indication: FOETAL EXPOSURE DURING PREGNANCY
  26. BETAMETHASONE. [Concomitant]
     Active Substance: BETAMETHASONE
     Indication: FOETAL EXPOSURE DURING PREGNANCY
  27. URAPIDIL [Concomitant]
     Active Substance: URAPIDIL
     Indication: FOETAL EXPOSURE DURING PREGNANCY
     Dosage: UNK (1ST TRIMESTER)
     Route: 064
  28. DIHYDRALAZINE [Concomitant]
     Active Substance: DIHYDRALAZINE
     Indication: FOETAL EXPOSURE DURING PREGNANCY
     Dosage: UNK (1ST TRIMESTER)
     Route: 064
  29. SUFENTANIL [Concomitant]
     Active Substance: SUFENTANIL
     Indication: FOETAL EXPOSURE DURING PREGNANCY
  30. CEFTAZIDIME. [Concomitant]
     Active Substance: CEFTAZIDIME
     Indication: FOETAL EXPOSURE DURING PREGNANCY

REACTIONS (3)
  - Premature baby [Unknown]
  - Patent ductus arteriosus [Recovered/Resolved]
  - Foetal exposure during pregnancy [Recovered/Resolved]
